FAERS Safety Report 10287354 (Version 1)
Quarter: 2014Q3

REPORT INFORMATION
  Report Type: Spontaneous
  Country: US (occurrence: None)
  Receive Date: 20140707
  Receipt Date: 20140707
  Transmission Date: 20150326
  Serious: Yes (Life-Threatening)
  Sender: FDA-Public Use
  Company Number: None

PATIENT
  Age: 64 Year
  Sex: Male
  Weight: 131.3 kg

DRUGS (1)
  1. WARFARIN [Suspect]
     Active Substance: WARFARIN
     Dates: start: 20081105, end: 20140701

REACTIONS (9)
  - Gastritis erosive [None]
  - Anaemia [None]
  - Ascites [None]
  - Hepatic cirrhosis [None]
  - Varices oesophageal [None]
  - Dyspnoea [None]
  - Splenomegaly [None]
  - Oedema peripheral [None]
  - Haemorrhage [None]

NARRATIVE: CASE EVENT DATE: 20140701
